FAERS Safety Report 6864004-1 (Version None)
Quarter: 2010Q3

REPORT INFORMATION
  Report Type: 
  Country: None (occurrence: None)
  Receive Date: 20100721
  Receipt Date: 20080314
  Transmission Date: 20110219
  Serious: No
  Sender: FDA-Public Use
  Company Number: US-PFIZER INC-2008023874

PATIENT
  Sex: Male
  Weight: 62.1 kg

DRUGS (3)
  1. CHANTIX [Suspect]
     Dates: start: 20080103, end: 20080106
  2. SIMVASTATIN [Concomitant]
  3. DRUG, UNSPECIFIED [Concomitant]
     Indication: HYPOTHYROIDISM

REACTIONS (2)
  - MALAISE [None]
  - PALPITATIONS [None]
